FAERS Safety Report 9100016 (Version 2)
Quarter: 2013Q4

REPORT INFORMATION
  Report Type: Report from Study
  Country: DE (occurrence: DE)
  Receive Date: 20130215
  Receipt Date: 20131022
  Transmission Date: 20140711
  Serious: Yes (Death, Other)
  Sender: FDA-Public Use
  Company Number: DE-ELI_LILLY_AND_COMPANY-DE201302001304

PATIENT
  Sex: Female

DRUGS (3)
  1. TERIPARATIDE [Suspect]
     Indication: OSTEOPOROSIS
     Dosage: UNK, QD
     Route: 058
     Dates: start: 20120528
  2. INSULIN [Concomitant]
  3. CALCIUM + VITAMIN D [Concomitant]

REACTIONS (3)
  - Death [Fatal]
  - Bone cancer [Unknown]
  - Malaise [Not Recovered/Not Resolved]
